FAERS Safety Report 8567204-8 (Version None)
Quarter: 2012Q3

REPORT INFORMATION
  Report Type: 
  Country: None (occurrence: None)
  Receive Date: 20120803
  Receipt Date: 20110830
  Transmission Date: 20120928
  Serious: No
  Sender: FDA-Public Use
  Company Number: US-ABBOTT-11P-163-0850355-00

PATIENT
  Age: 31 Year
  Sex: Male
  Weight: 81.72 kg

DRUGS (3)
  1. NEXIUM [Concomitant]
     Indication: GASTROOESOPHAGEAL REFLUX DISEASE
  2. FISH OIL [Concomitant]
     Indication: BLOOD TRIGLYCERIDES INCREASED
  3. NIASPAN [Suspect]
     Indication: BLOOD TRIGLYCERIDES INCREASED
     Dosage: TAKES 4 AT NIGHT
     Dates: start: 20110601

REACTIONS (2)
  - DRUG DOSE OMISSION [None]
  - PARAESTHESIA [None]
